FAERS Safety Report 5808955-5 (Version None)
Quarter: 2008Q3

REPORT INFORMATION
  Report Type: 
  Country: None (occurrence: None)
  Receive Date: 20080710
  Receipt Date: 20080710
  Transmission Date: 20090109
  Serious: Yes (Other)
  Sender: FDA-Public Use
  Company Number: None

PATIENT
  Age: 84 Year
  Sex: Male
  Weight: 77.1115 kg

DRUGS (2)
  1. CIPRO [Suspect]
     Indication: URINARY TRACT INFECTION
     Dosage: 250 BID
     Dates: start: 20031223, end: 20040106
  2. CIPRO [Suspect]
     Indication: URINARY TRACT INFECTION
     Dosage: 250 BID
     Dates: start: 20040214, end: 20040228

REACTIONS (1)
  - PERONEAL NERVE PALSY [None]
